FAERS Safety Report 10367719 (Version 4)
Quarter: 2015Q2

REPORT INFORMATION
  Report Type: Spontaneous
  Country: US (occurrence: US)
  Receive Date: 20140807
  Receipt Date: 20150408
  Transmission Date: 20150821
  Serious: Yes (Life-Threatening, Other)
  Sender: FDA-Public Use
  Company Number: US-PFIZER INC-2014218854

PATIENT
  Age: 76 Year
  Sex: Female
  Weight: 69.84 kg

DRUGS (5)
  1. LYRICA [Suspect]
     Active Substance: PREGABALIN
     Indication: SPINAL CORD INJURY
     Dosage: 50 MG, 2X/DAY
     Route: 048
     Dates: start: 20141122, end: 20141130
  2. LYRICA [Suspect]
     Active Substance: PREGABALIN
     Indication: INTERVERTEBRAL DISC DISORDER
     Dosage: 75 MG, 2X/DAY
     Route: 048
     Dates: start: 2014
  3. LYRICA [Suspect]
     Active Substance: PREGABALIN
     Dosage: 25 MG, 2X/DAY
     Route: 048
     Dates: start: 201407
  4. LYRICA [Suspect]
     Active Substance: PREGABALIN
     Indication: FIBROMYALGIA
     Dosage: 50 MG, 2X/DAY
     Route: 048
     Dates: start: 20140711, end: 2014
  5. LYRICA [Suspect]
     Active Substance: PREGABALIN
     Indication: NEUROPATHY PERIPHERAL
     Dosage: 75 MG, 2X/DAY
     Route: 048
     Dates: start: 20141201

REACTIONS (12)
  - Anxiety [Unknown]
  - Somnolence [Recovered/Resolved]
  - Dyspnoea [Recovered/Resolved]
  - Peripheral swelling [Recovered/Resolved]
  - Malaise [Unknown]
  - Cataract [Unknown]
  - Vision blurred [Unknown]
  - Hypoaesthesia [Unknown]
  - Chest discomfort [Unknown]
  - Muscular weakness [Unknown]
  - Pain [Recovered/Resolved]
  - Skin haemorrhage [Unknown]

NARRATIVE: CASE EVENT DATE: 2014
